FAERS Safety Report 19430881 (Version 1)
Quarter: 2021Q2

REPORT INFORMATION
  Report Type: Report from Study
  Country: GB (occurrence: GB)
  Receive Date: 20210618
  Receipt Date: 20210618
  Transmission Date: 20210717
  Serious: Yes (Other)
  Sender: FDA-Public Use
  Company Number: GB-ADVANZ PHARMA-202102001596

PATIENT

DRUGS (2)
  1. ZYTIGA [Suspect]
     Active Substance: ABIRATERONE ACETATE
     Indication: PROSTATE CANCER
     Dosage: 1000 MG, QD
     Route: 048
     Dates: start: 20201002
  2. PREDNISOLONE. [Suspect]
     Active Substance: PREDNISOLONE
     Indication: PROSTATE CANCER
     Dosage: 10 MG, QD, TABLET
     Route: 048
     Dates: start: 20201002

REACTIONS (5)
  - Vertigo [Recovering/Resolving]
  - Haematuria [Recovering/Resolving]
  - Prostatic specific antigen increased [Recovering/Resolving]
  - Dizziness [Recovering/Resolving]
  - Incontinence [Unknown]

NARRATIVE: CASE EVENT DATE: 20210217
